FAERS Safety Report 4333722-1 (Version None)
Quarter: 2004Q2

REPORT INFORMATION
  Report Type: 
  Country: None (occurrence: None)
  Receive Date: 20040407
  Receipt Date: 20031017
  Transmission Date: 20050107
  Serious: Yes (Hospitalization, Other)
  Sender: FDA-Public Use
  Company Number: BW-BRISTOL-MYERS SQUIBB COMPANY-12427605

PATIENT
  Sex: Female

DRUGS (3)
  1. EFAVIRENZ [Suspect]
     Indication: HIV INFECTION
     Dates: start: 20030411
  2. COMBIVIR [Suspect]
     Indication: HIV INFECTION
     Dates: start: 20030411
  3. HERBAL MIXTURE [Concomitant]

REACTIONS (10)
  - ASTHENIA [None]
  - COUGH [None]
  - DEHYDRATION [None]
  - DIARRHOEA [None]
  - DYSPNOEA [None]
  - GASTROENTERITIS [None]
  - ISOSPORIASIS [None]
  - LIPASE INCREASED [None]
  - NAUSEA [None]
  - VOMITING [None]
